FAERS Safety Report 13148001 (Version 1)
Quarter: 2017Q1

REPORT INFORMATION
  Report Type: Spontaneous
  Country: US (occurrence: US)
  Receive Date: 20170125
  Receipt Date: 20170125
  Transmission Date: 20170428
  Serious: No
  Sender: FDA-Public Use
  Company Number: US-AMGEN-USASP2017008896

PATIENT
  Age: 66 Year
  Sex: Male

DRUGS (8)
  1. TAMSULOSIN HCL [Concomitant]
     Active Substance: TAMSULOSIN
  2. METFORMIN HCL [Concomitant]
     Active Substance: METFORMIN HYDROCHLORIDE
  3. ENBREL [Suspect]
     Active Substance: ETANERCEPT
     Indication: RHEUMATOID ARTHRITIS
     Dosage: 50 MG, QWK
     Route: 058
  4. METHOTREXATE SODIUM. [Concomitant]
     Active Substance: METHOTREXATE SODIUM
  5. METHOCARBAMOL. [Concomitant]
     Active Substance: METHOCARBAMOL
  6. GLIPIZIDE. [Concomitant]
     Active Substance: GLIPIZIDE
  7. CRESTOR [Concomitant]
     Active Substance: ROSUVASTATIN CALCIUM
  8. HYDROCODONE/ACETAMINOPHEN [Concomitant]
     Active Substance: ACETAMINOPHEN\HYDROCODONE

REACTIONS (5)
  - Drug dose omission [Unknown]
  - Decreased interest [Unknown]
  - Fatigue [Unknown]
  - Pain [Unknown]
  - Depression [Unknown]
